FAERS Safety Report 25207423 (Version 1)
Quarter: 2025Q2

REPORT INFORMATION
  Report Type: Spontaneous
  Country: IN (occurrence: IN)
  Receive Date: 20250417
  Receipt Date: 20250417
  Transmission Date: 20250716
  Serious: Yes (Life-Threatening)
  Sender: ACCORD
  Company Number: IN-Accord-479580

PATIENT
  Age: 56 Year
  Sex: Female

DRUGS (6)
  1. CARBOPLATIN [Suspect]
     Active Substance: CARBOPLATIN
     Indication: Neuroendocrine carcinoma of the oesophagus
     Dosage: 500 MG (AREA UNDER CURVE FIVE) ON DAY ONE, EVERY 21 DAYS FOR FOUR CYCLES
  2. ETOPOSIDE [Suspect]
     Active Substance: ETOPOSIDE
     Indication: Neuroendocrine carcinoma of the oesophagus
     Dosage: 120 MG (100 MG/M2) ON DAYS ONE, TWO, AND THREE EVERY 21 DAYS (FOUR CYCLES)
  3. CARBOPLATIN [Suspect]
     Active Substance: CARBOPLATIN
     Indication: Metastases to lymph nodes
     Dosage: 500 MG (AREA UNDER CURVE FIVE) ON DAY ONE, EVERY 21 DAYS FOR FOUR CYCLES
  4. CARBOPLATIN [Suspect]
     Active Substance: CARBOPLATIN
     Indication: Metastases to liver
     Dosage: 500 MG (AREA UNDER CURVE FIVE) ON DAY ONE, EVERY 21 DAYS FOR FOUR CYCLES
  5. ETOPOSIDE [Suspect]
     Active Substance: ETOPOSIDE
     Indication: Metastases to liver
     Dosage: 120 MG (100 MG/M2) ON DAYS ONE, TWO, AND THREE EVERY 21 DAYS (FOUR CYCLES)
  6. ETOPOSIDE [Suspect]
     Active Substance: ETOPOSIDE
     Indication: Metastases to lymph nodes
     Dosage: 120 MG (100 MG/M2) ON DAYS ONE, TWO, AND THREE EVERY 21 DAYS (FOUR CYCLES)

REACTIONS (1)
  - Inappropriate antidiuretic hormone secretion [Recovered/Resolved]
